FAERS Safety Report 9775656 (Version 3)
Quarter: 2014Q1

REPORT INFORMATION
  Report Type: Spontaneous
  Country: US (occurrence: US)
  Receive Date: 20131220
  Receipt Date: 20140203
  Transmission Date: 20141002
  Serious: Yes (Other)
  Sender: FDA-Public Use
  Company Number: US-PFIZER INC-2013362933

PATIENT
  Sex: Female

DRUGS (2)
  1. LIPITOR [Suspect]
     Dosage: 40 MG, UNK
  2. LIPITOR [Suspect]
     Dosage: 40 MG, ALTERNATE DAY

REACTIONS (9)
  - Cerebrovascular accident [Unknown]
  - Diabetes mellitus [Unknown]
  - Drug prescribing error [Unknown]
  - Dizziness [Unknown]
  - Frustration [Unknown]
  - Nervousness [Unknown]
  - Emotional disorder [Unknown]
  - Speech disorder [Unknown]
  - Drug intolerance [Unknown]
